FAERS Safety Report 8875364 (Version 2)
Quarter: 2012Q4

REPORT INFORMATION
  Report Type: Report from Study
  Country: US (occurrence: US)
  Receive Date: 20121029
  Receipt Date: 20121120
  Transmission Date: 20130627
  Serious: Yes (Other)
  Sender: FDA-Public Use
  Company Number: US-ABBOTT-12P-163-0996200-00

PATIENT
  Sex: Female

DRUGS (1)
  1. HUMIRA PEN [Suspect]
     Indication: CROHN^S DISEASE
     Route: 058
     Dates: start: 201202, end: 201209

REACTIONS (5)
  - Intestinal stenosis [Unknown]
  - Intestinal anastomosis [Unknown]
  - Crohn^s disease [Unknown]
  - Diverticulitis [Unknown]
  - Intestinal obstruction [Unknown]
